FAERS Safety Report 14834799 (Version 7)
Quarter: 2019Q2

REPORT INFORMATION
  Report Type: Report from Study
  Country: CA (occurrence: CA)
  Receive Date: 20180501
  Receipt Date: 20190607
  Transmission Date: 20190711
  Serious: Yes (Other)
  Sender: FDA-Public Use
  Company Number: CA-JAZZ-2018-CA-004723

PATIENT
  Age: 34 Year
  Sex: Female

DRUGS (15)
  1. OXYCONTIN [Suspect]
     Active Substance: OXYCODONE HYDROCHLORIDE
     Indication: PRODUCT USED FOR UNKNOWN INDICATION
     Dosage: UNK
     Route: 048
     Dates: start: 20180421
  2. SALBUTAMOL [Suspect]
     Active Substance: ALBUTEROL
     Indication: PRODUCT USED FOR UNKNOWN INDICATION
  3. XYREM [Suspect]
     Active Substance: SODIUM OXYBATE
     Indication: NARCOLEPSY
     Dosage: 2.25 G, BID
     Route: 048
     Dates: start: 20180216, end: 20180218
  4. XYREM [Suspect]
     Active Substance: SODIUM OXYBATE
     Dosage: 3.75 G, BID
     Route: 048
     Dates: start: 201803, end: 20180612
  5. OXAZEPAM. [Concomitant]
     Active Substance: OXAZEPAM
     Indication: PRODUCT USED FOR UNKNOWN INDICATION
     Dosage: 10 MG, TWICE DAILY PRESCRIBED; TAKES 20 MG ONCE DAILY IF NEEDED
  6. CLINDAMYCIN. [Concomitant]
     Active Substance: CLINDAMYCIN
     Indication: PRODUCT USED FOR UNKNOWN INDICATION
     Dosage: 300 MG, TWICE DAILY
  7. PREGABALIN. [Suspect]
     Active Substance: PREGABALIN
     Indication: PAIN MANAGEMENT
  8. XYREM [Suspect]
     Active Substance: SODIUM OXYBATE
     Dosage: SHE HAD REMAINING, BUT IT WAS NOT A FULL 3G DOSE
     Route: 048
     Dates: start: 20180318
  9. PREDNISONE. [Suspect]
     Active Substance: PREDNISONE
     Indication: PRODUCT USED FOR UNKNOWN INDICATION
  10. CAFFEINE. [Concomitant]
     Active Substance: CAFFEINE
     Indication: PRODUCT USED FOR UNKNOWN INDICATION
     Dosage: 100 MG, DAILY PRN
  11. OXYCODONE [Suspect]
     Active Substance: OXYCODONE
     Indication: HEADACHE
     Dosage: 20 MG, POQ TWICE DAILY
     Route: 048
  12. XYREM [Suspect]
     Active Substance: SODIUM OXYBATE
     Dosage: 3 G, BID
     Route: 048
     Dates: start: 20180218, end: 201803
  13. ADDERALL [Suspect]
     Active Substance: AMPHETAMINE ASPARTATE\AMPHETAMINE SULFATE\DEXTROAMPHETAMINE SACCHARATE\DEXTROAMPHETAMINE SULFATE
     Indication: PRODUCT USED FOR UNKNOWN INDICATION
     Dosage: 90 MG, DAILY PRN
     Route: 048
  14. XYREM [Suspect]
     Active Substance: SODIUM OXYBATE
     Dosage: 3 G, FIRST DOSE
     Route: 048
     Dates: start: 201803, end: 201803
  15. SUMATRIPTAN. [Suspect]
     Active Substance: SUMATRIPTAN
     Indication: PRODUCT USED FOR UNKNOWN INDICATION

REACTIONS (20)
  - Cushing^s syndrome [Not Recovered/Not Resolved]
  - Loss of consciousness [Unknown]
  - Anxiety [Unknown]
  - Drug ineffective [Not Recovered/Not Resolved]
  - Arthritis [Not Recovered/Not Resolved]
  - Blood testosterone increased [Unknown]
  - Pain [Unknown]
  - Dizziness [Unknown]
  - Migraine [Unknown]
  - Panic attack [Unknown]
  - Intentional product use issue [Unknown]
  - Skin ulcer [Recovering/Resolving]
  - Anger [Not Recovered/Not Resolved]
  - Drug dependence [Not Recovered/Not Resolved]
  - Nasopharyngitis [Recovering/Resolving]
  - Hormone level abnormal [Unknown]
  - Somnolence [Unknown]
  - Skin disorder [Not Recovered/Not Resolved]
  - Drug hypersensitivity [Recovering/Resolving]
  - Irritability [Not Recovered/Not Resolved]

NARRATIVE: CASE EVENT DATE: 2018
